FAERS Safety Report 4616017-8 (Version None)
Quarter: 2005Q1

REPORT INFORMATION
  Report Type: 
  Country: None (occurrence: None)
  Receive Date: 20050318
  Receipt Date: 20050310
  Transmission Date: 20050727
  Serious: Yes (Other)
  Sender: FDA-Public Use
  Company Number: 2005-00883

PATIENT
  Age: 9 Year
  Sex: Female

DRUGS (1)
  1. TRELSTAR [Suspect]
     Indication: PRECOCIOUS PUBERTY
     Dosage: 11.25 MG, EVERY 3 MONTHS, INTRAMUSCULAR
     Route: 030
     Dates: start: 20030101, end: 20041201

REACTIONS (2)
  - BONE MARROW DEPRESSION [None]
  - PANCYTOPENIA [None]
